FAERS Safety Report 23936783 (Version 1)
Quarter: 2024Q2

REPORT INFORMATION
  Report Type: Spontaneous
  Country: US (occurrence: US)
  Receive Date: 20240604
  Receipt Date: 20240604
  Transmission Date: 20240715
  Serious: No
  Sender: FDA-Public Use
  Company Number: US-SA-SAC20240530000857

PATIENT
  Age: 62 Year
  Sex: Female
  Weight: 72.574 kg

DRUGS (1)
  1. DUPIXENT [Suspect]
     Active Substance: DUPILUMAB
     Dosage: 300 MG, QOW
     Route: 058

REACTIONS (3)
  - Rash erythematous [Unknown]
  - Ear pruritus [Unknown]
  - Product administration error [Unknown]

NARRATIVE: CASE EVENT DATE: 20240524
